FAERS Safety Report 9145553 (Version 1)
Quarter: 2013Q1

REPORT INFORMATION
  Report Type: Spontaneous
  Country: US (occurrence: None)
  Receive Date: 20130227
  Receipt Date: 20130227
  Transmission Date: 20140127
  Serious: No
  Sender: FDA-Public Use
  Company Number: None

PATIENT
  Age: 93 Year
  Sex: Male
  Weight: 69 kg

DRUGS (1)
  1. LATANOPROST [Suspect]
     Indication: GLAUCOMA
     Dosage: 1 DROPS  AT BEDTIME  EYE
     Dates: start: 20120816, end: 20130221

REACTIONS (1)
  - Treatment failure [None]
